FAERS Safety Report 7145502-2 (Version None)
Quarter: 2010Q4

REPORT INFORMATION
  Report Type: 
  Country: None (occurrence: None)
  Receive Date: 20101208
  Receipt Date: 20101203
  Transmission Date: 20110411
  Serious: Yes (Other)
  Sender: FDA-Public Use
  Company Number: US-ROCHE-746275

PATIENT

DRUGS (2)
  1. TAMIFLU [Suspect]
     Route: 065
  2. AMOXICILLIN [Suspect]
     Route: 065

REACTIONS (1)
  - RENAL FAILURE [None]
